FAERS Safety Report 25435166 (Version 5)
Quarter: 2025Q4

REPORT INFORMATION
  Report Type: Spontaneous
  Country: US (occurrence: US)
  Receive Date: 20250613
  Receipt Date: 20251022
  Transmission Date: 20260117
  Serious: Yes (Other)
  Sender: BLUEPRINT MEDICINES
  Company Number: US-Blueprint Medicines Corporation-2025-AER-01274

PATIENT
  Age: 44 Year
  Sex: Female
  Weight: 109.77 kg

DRUGS (2)
  1. AYVAKIT [Suspect]
     Active Substance: AVAPRITINIB
     Indication: Mast cell activation syndrome
     Route: 065
  2. AYVAKIT [Suspect]
     Active Substance: AVAPRITINIB
     Indication: Hereditary alpha tryptasaemia
     Route: 065

REACTIONS (20)
  - Abnormal dreams [Recovering/Resolving]
  - Nerve block [Recovered/Resolved with Sequelae]
  - Nightmare [Recovering/Resolving]
  - Mast cell activation syndrome [Unknown]
  - Condition aggravated [Unknown]
  - Hereditary alpha tryptasaemia [Unknown]
  - Respiratory disorder [Recovered/Resolved]
  - Face oedema [Not Recovered/Not Resolved]
  - Oedema peripheral [Not Recovered/Not Resolved]
  - Dizziness [Recovering/Resolving]
  - Localised oedema [Recovering/Resolving]
  - Periorbital swelling [Recovering/Resolving]
  - Dyspnoea [Unknown]
  - Flushing [Unknown]
  - Stress [Unknown]
  - Blood uric acid increased [Recovering/Resolving]
  - Weight increased [Unknown]
  - Vomiting [Unknown]
  - Fatigue [Unknown]
  - Hypersomnia [Unknown]

NARRATIVE: CASE EVENT DATE: 20250602
